FAERS Safety Report 5728158-2 (Version None)
Quarter: 2008Q2

REPORT INFORMATION
  Report Type: 
  Country: None (occurrence: None)
  Receive Date: 20080430
  Receipt Date: 20080421
  Transmission Date: 20081010
  Serious: Yes (Hospitalization, Other)
  Sender: FDA-Public Use
  Company Number: 08H-163-0314192-00

PATIENT
  Age: 23 Year
  Sex: Male

DRUGS (6)
  1. NEO-SYNEPHRINE-THENFADIL HCL [Suspect]
     Indication: PRIAPISM
     Dosage: 500 MCG/ML, EVERY THREE MINUTES, INTRA CORPUS CAVERNOSUM
     Route: 017
  2. INTRAVENOUS FLUIDS (PARENTERAL) [Concomitant]
  3. OXYGEN (OXYGEN) [Concomitant]
  4. ANALGESICS (ANALGESICS) [Concomitant]
  5. SODIUM CHLORIDE [Concomitant]
  6. LIDOCAINE 1% (LIDOCAINE) [Concomitant]

REACTIONS (2)
  - HYPERTENSION [None]
  - SUBARACHNOID HAEMORRHAGE [None]
